FAERS Safety Report 8652391 (Version 4)
Quarter: 2013Q1

REPORT INFORMATION
  Report Type: Spontaneous
  Country: AR (occurrence: AR)
  Receive Date: 20120706
  Receipt Date: 20130115
  Transmission Date: 20140127
  Serious: Yes (Other)
  Sender: FDA-Public Use
  Company Number: AR-ROCHE-1084311

PATIENT
  Sex: Female

DRUGS (3)
  1. XOLAIR [Suspect]
     Indication: ASTHMA
     Dosage: TWO AMPOULES
     Route: 065
     Dates: start: 20111017
  2. XOLAIR [Suspect]
     Route: 065
     Dates: start: 20121205
  3. OXYGEN [Concomitant]

REACTIONS (6)
  - Asthmatic crisis [Recovering/Resolving]
  - Nasopharyngitis [Recovering/Resolving]
  - Blood pressure increased [Recovering/Resolving]
  - Nervousness [Recovering/Resolving]
  - Depression [Recovering/Resolving]
  - Bronchospasm [Recovering/Resolving]
